FAERS Safety Report 7265391-5 (Version None)
Quarter: 2011Q1

REPORT INFORMATION
  Report Type: 
  Country: None (occurrence: None)
  Receive Date: 20110131
  Receipt Date: 20110124
  Transmission Date: 20110831
  Serious: Yes (Life-Threatening, Other)
  Sender: FDA-Public Use
  Company Number: JP-ROCHE-750285

PATIENT
  Age: 63 Year
  Sex: Male
  Weight: 52 kg

DRUGS (31)
  1. TOCILIZUMAB [Suspect]
     Indication: RHEUMATOID ARTHRITIS
     Route: 041
     Dates: start: 20090516, end: 20090516
  2. FOSAMAX [Concomitant]
     Dosage: REPORTED AS FOSAMAC
     Route: 048
     Dates: start: 20090902, end: 20091124
  3. PREDONINE [Concomitant]
     Route: 048
     Dates: start: 20091125, end: 20100218
  4. BREDININ [Concomitant]
     Route: 048
     Dates: start: 20100611, end: 20100903
  5. TOCILIZUMAB [Suspect]
     Route: 041
     Dates: start: 20090812, end: 20090812
  6. PREDONINE [Concomitant]
     Indication: RHEUMATOID ARTHRITIS
     Route: 048
     Dates: start: 20090501, end: 20091124
  7. ACTONEL [Concomitant]
     Route: 048
     Dates: start: 20091125, end: 20101120
  8. CYTOTEC [Concomitant]
     Route: 048
     Dates: end: 20101120
  9. LOCOID [Concomitant]
     Dosage: DOSAGE IS UNCERTAIN. FORM: OINTMENT AND CREAM
     Route: 003
     Dates: end: 20101120
  10. TOCILIZUMAB [Suspect]
     Route: 041
     Dates: start: 20090708, end: 20090708
  11. TOCILIZUMAB [Suspect]
     Route: 041
     Dates: start: 20090902, end: 20090902
  12. PREDONINE [Concomitant]
     Route: 048
     Dates: start: 20100219, end: 20100610
  13. PREDONINE [Concomitant]
     Route: 048
     Dates: start: 20100611, end: 20100708
  14. PREDONINE [Concomitant]
     Dosage: STOP DATE: 2010
     Route: 048
     Dates: start: 20100806
  15. FELBINAC [Concomitant]
     Dosage: AT THE RIGHT TIME
     Route: 062
  16. FELBINAC [Concomitant]
     Dosage: AT THE RIGHT TIME, FORM: TAPE
     Route: 062
  17. PROGRAF [Concomitant]
     Dosage: DRUG: PROGRAF(TACROLIMUS HYDRATE)
     Route: 048
     Dates: end: 20101120
  18. PREDONINE [Concomitant]
     Route: 048
     Dates: start: 20100101, end: 20101120
  19. METHOTREXATE [Concomitant]
     Route: 048
  20. FAMOTIDINE [Concomitant]
     Dosage: 20210 MG
     Route: 048
     Dates: end: 20101120
  21. VOLTAREN [Concomitant]
     Route: 048
  22. PROGRAF [Concomitant]
     Route: 048
     Dates: start: 20101224
  23. KETOPROFEN [Concomitant]
     Dosage: FORM: TAPE, ONE PIECE
     Route: 062
     Dates: end: 20101120
  24. KETOPROFEN [Concomitant]
     Dosage: ONE PIECE
     Route: 062
  25. FELBINAC [Concomitant]
     Dosage: AT THE RIGHT TIME, FORM: TAPE
     Route: 062
     Dates: end: 20101120
  26. TOCILIZUMAB [Suspect]
     Route: 041
     Dates: start: 20090610, end: 20090610
  27. TOCILIZUMAB [Suspect]
     Route: 041
     Dates: start: 20090930, end: 20090930
  28. TOCILIZUMAB [Suspect]
     Route: 041
     Dates: start: 20091021, end: 20101029
  29. PREDONINE [Concomitant]
     Route: 048
     Dates: start: 20100709, end: 20100805
  30. METHOTREXATE [Concomitant]
     Route: 048
     Dates: end: 20101120
  31. FOLIAMIN [Concomitant]
     Route: 048
     Dates: end: 20101120

REACTIONS (5)
  - LARGE INTESTINE PERFORATION [None]
  - ANAEMIA [None]
  - ILEUS [None]
  - RHEUMATOID ARTHRITIS [None]
  - C-REACTIVE PROTEIN INCREASED [None]
